FAERS Safety Report 8942017 (Version 3)
Quarter: 2012Q4

REPORT INFORMATION
  Report Type: 
  Country: US (occurrence: US)
  Receive Date: 20121130
  Receipt Date: 20121210
  Transmission Date: 20130627
  Serious: No
  Sender: FDA-Public Use
  Company Number: US-009507513-1211USA012347

PATIENT
  Sex: Male
  Weight: 96.6 kg

DRUGS (2)
  1. CLARITIN [Suspect]
     Indication: PRODUCT USED FOR UNKNOWN INDICATION
     Dosage: UNK, Unknown
     Route: 048
  2. REVLIMID [Concomitant]
     Indication: NEOPLASM MALIGNANT
     Dosage: UNK, Unknown

REACTIONS (1)
  - Drug ineffective [Unknown]
